FAERS Safety Report 7575964-8 (Version None)
Quarter: 2011Q2

REPORT INFORMATION
  Report Type: 
  Country: None (occurrence: None)
  Receive Date: 20110628
  Receipt Date: 20110616
  Transmission Date: 20111010
  Serious: Yes (Hospitalization)
  Sender: FDA-Public Use
  Company Number: US-BAYER-2011-052726

PATIENT
  Age: 36 Year
  Sex: Male

DRUGS (2)
  1. BETASERON [Suspect]
     Indication: PRODUCT USED FOR UNKNOWN INDICATION
     Dosage: UNK
     Dates: start: 20060101, end: 20090101
  2. AVONEX [Concomitant]
     Indication: MULTIPLE SCLEROSIS
     Dosage: 30 ?G, OW
     Route: 030
     Dates: start: 20020201

REACTIONS (3)
  - FEAR OF NEEDLES [None]
  - DEPRESSED MOOD [None]
  - PYREXIA [None]
